FAERS Safety Report 6207585-3 (Version None)
Quarter: 2009Q2

REPORT INFORMATION
  Report Type: 
  Country: None (occurrence: None)
  Receive Date: 20090528
  Receipt Date: 20090518
  Transmission Date: 20091009
  Serious: Yes (Hospitalization)
  Sender: FDA-Public Use
  Company Number: DE-WATSON-2009-03579

PATIENT
  Age: 20 Year
  Sex: Female

DRUGS (2)
  1. PREDNISOLONE ACETATE (WATSON LABORATORIES) [Suspect]
     Indication: OPTIC NEURITIS
     Dosage: 1000 MG, DAILY X3 DAYS
     Route: 042
     Dates: start: 20080101
  2. PREDNISOLONE ACETATE (WATSON LABORATORIES) [Suspect]
     Dosage: TAPERED DOSE
     Route: 048

REACTIONS (1)
  - ACUTE GENERALISED EXANTHEMATOUS PUSTULOSIS [None]
